FAERS Safety Report 20662459 (Version 1)
Quarter: 2022Q2

REPORT INFORMATION
  Report Type: Spontaneous
  Country: FR (occurrence: FR)
  Receive Date: 20220401
  Receipt Date: 20220401
  Transmission Date: 20220720
  Serious: Yes (Life-Threatening, Hospitalization)
  Sender: FDA-Public Use
  Company Number: FR-STRIDES ARCOLAB LIMITED-2022SP003262

PATIENT
  Age: 74 Year
  Sex: Male

DRUGS (6)
  1. DEXAMETHASONE [Suspect]
     Active Substance: DEXAMETHASONE
     Indication: COVID-19
     Dosage: 6 MILLIGRAM PER DAY
     Route: 065
     Dates: start: 20201023
  2. DEXAMETHASONE [Suspect]
     Active Substance: DEXAMETHASONE
     Dosage: 10 MILLIGRAM, BID
     Route: 065
     Dates: start: 202010
  3. AZITHROMYCIN [Suspect]
     Active Substance: AZITHROMYCIN
     Indication: COVID-19
     Dosage: UNK
     Route: 065
     Dates: start: 202010
  4. METHYLPREDNISOLONE [Suspect]
     Active Substance: METHYLPREDNISOLONE
     Indication: COVID-19
     Dosage: 120 MILLIGRAM, UNKNOWN
     Route: 065
     Dates: start: 20201023
  5. CEFTRIAXONE [Concomitant]
     Active Substance: CEFTRIAXONE
     Indication: COVID-19
     Dosage: UNK
     Route: 065
     Dates: start: 202010
  6. ENOXAPARIN SODIUM [Concomitant]
     Active Substance: ENOXAPARIN SODIUM
     Indication: Anticoagulant therapy
     Dosage: 0.8 MILLILITER, BID
     Route: 058

REACTIONS (13)
  - Multiple organ dysfunction syndrome [Unknown]
  - Tachypnoea [Unknown]
  - Respiratory distress [Unknown]
  - Acute kidney injury [Unknown]
  - Metabolic alkalosis [Unknown]
  - Cardiac failure acute [Unknown]
  - Aspergillus infection [Unknown]
  - Mucormycosis [Unknown]
  - Pseudomonas infection [Unknown]
  - Pneumonia [Unknown]
  - Stenotrophomonas infection [Unknown]
  - Herpes simplex [Unknown]
  - Off label use [Unknown]

NARRATIVE: CASE EVENT DATE: 20201001
